FAERS Safety Report 20920706 (Version 1)
Quarter: 2022Q2

REPORT INFORMATION
  Report Type: Spontaneous
  Country: DE (occurrence: DE)
  Receive Date: 20220606
  Receipt Date: 20220606
  Transmission Date: 20220721
  Serious: Yes (Other)
  Sender: FDA-Public Use
  Company Number: DE-Atnahs Limited-ATNAHS20220505505

PATIENT
  Age: 57 Year
  Sex: Male
  Weight: 88 kg

DRUGS (6)
  1. COMIRNATY [Suspect]
     Active Substance: TOZINAMERAN
     Indication: COVID-19 immunisation
     Dosage: DOSE 2 (INITIAL PFIZER DOSE), SINGLE
     Dates: start: 20210717, end: 20210717
  2. PANTOPRAZOLE [Suspect]
     Active Substance: PANTOPRAZOLE
     Dosage: UNK UNK, QD
     Route: 065
     Dates: start: 201805
  3. CARVEDILOL [Suspect]
     Active Substance: CARVEDILOL
     Dosage: UNK, 1X/DAY
     Route: 048
     Dates: start: 202005
  4. IBANDRONIC ACID [Suspect]
     Active Substance: IBANDRONIC ACID
     Dosage: 2 DOSAGE FORM
     Route: 065
     Dates: start: 202109, end: 202111
  5. CHOLECALCIFEROL [Suspect]
     Active Substance: CHOLECALCIFEROL
     Dosage: 20000 INTERNATIONAL UNIT, 1/WEEK
     Route: 065
     Dates: start: 201606
  6. FERROUS SULFATE\FOLIC ACID [Suspect]
     Active Substance: FERROUS SULFATE\FOLIC ACID
     Dosage: UNK, 1X/DAY
     Route: 065
     Dates: start: 202111, end: 202201

REACTIONS (3)
  - Basal ganglia haemorrhage [Recovered/Resolved]
  - Interchange of vaccine products [Unknown]
  - Off label use [Unknown]

NARRATIVE: CASE EVENT DATE: 20210717
